FAERS Safety Report 6940525-8 (Version None)
Quarter: 2010Q3

REPORT INFORMATION
  Report Type: 
  Country: None (occurrence: None)
  Receive Date: 20100817
  Receipt Date: 20100411
  Transmission Date: 20110219
  Serious: Yes (Other)
  Sender: FDA-Public Use
  Company Number: 20108592

PATIENT
  Age: 46 Year
  Sex: Male

DRUGS (1)
  1. LIORESAL [Suspect]
     Indication: MUSCLE SPASTICITY
     Dosage: MCG, DAILY, INTRATHECAL
     Route: 037

REACTIONS (5)
  - CONDITION AGGRAVATED [None]
  - MEDICAL DEVICE COMPLICATION [None]
  - MUSCLE SPASTICITY [None]
  - PYREXIA [None]
  - THERAPEUTIC RESPONSE DECREASED [None]
